FAERS Safety Report 9111982 (Version 2)
Quarter: 2014Q1

REPORT INFORMATION
  Report Type: Spontaneous
  Country: US (occurrence: US)
  Receive Date: 20130219
  Receipt Date: 20140213
  Transmission Date: 20141002
  Serious: No
  Sender: FDA-Public Use
  Company Number: US-BRISTOL-MYERS SQUIBB COMPANY-16641151

PATIENT
  Age: 55 Year
  Sex: Female
  Weight: 81.63 kg

DRUGS (2)
  1. ABATACEPT SUBQ INJECTION 125MG/ML [Suspect]
     Dosage: NO OF INJ:5,LAST INJ ON 25MAY12,19JUN2013
     Route: 058
  2. METHOTREXATE [Concomitant]

REACTIONS (6)
  - Influenza like illness [Unknown]
  - Injection site mass [Unknown]
  - Drug ineffective [Unknown]
  - Injury associated with device [Unknown]
  - Local swelling [Unknown]
  - Ecchymosis [Recovered/Resolved]
